FAERS Safety Report 22134157 (Version 2)
Quarter: 2023Q2

REPORT INFORMATION
  Report Type: Spontaneous
  Country: HR (occurrence: HR)
  Receive Date: 20230324
  Receipt Date: 20230410
  Transmission Date: 20230722
  Serious: Yes (Death)
  Sender: FDA-Public Use
  Company Number: None

PATIENT
  Age: 81 Year
  Sex: Female

DRUGS (5)
  1. LORAZEPAM [Suspect]
     Active Substance: LORAZEPAM
     Indication: Product used for unknown indication
     Dosage: THE STRENGTH OF THE MEDICINE 1 MG 2X1 DOSAGE 2X1
     Route: 048
  2. ACETAMINOPHEN [Suspect]
     Active Substance: ACETAMINOPHEN
     Indication: Product used for unknown indication
     Dosage: 1 G I.V
     Route: 042
  3. SULPIRIDE [Suspect]
     Active Substance: SULPIRIDE
     Indication: Product used for unknown indication
     Dosage: DRUG STRENGTH 50MG DOSAGE 1,0,0
     Route: 065
  4. DOXYCYCLINE [Suspect]
     Active Substance: DOXYCYCLINE
     Indication: Product used for unknown indication
     Dosage: THE STRENGTH OF THE DRUG 100, DOSAGE 2X100
     Route: 048
  5. QUETIAPINE [Suspect]
     Active Substance: QUETIAPINE
     Indication: Product used for unknown indication
     Dosage: THE STRENGTH OF THE DRUG QUETIAPINE 25 MG 1,1,2, DOSAGE 25
     Route: 048
     Dates: start: 2022

REACTIONS (9)
  - Tachycardia [Fatal]
  - Pneumonia [Fatal]
  - Vomiting [Fatal]
  - Speech disorder [Fatal]
  - Cystitis [Fatal]
  - Diarrhoea [Fatal]
  - Amnesia [Fatal]
  - Pyrexia [Fatal]
  - Cardiac failure [Fatal]

NARRATIVE: CASE EVENT DATE: 20221130
